FAERS Safety Report 23293778 (Version 3)
Quarter: 2024Q1

REPORT INFORMATION
  Report Type: Spontaneous
  Country: AU (occurrence: AU)
  Receive Date: 20231213
  Receipt Date: 20240117
  Transmission Date: 20240410
  Serious: Yes (Hospitalization, Other)
  Sender: FDA-Public Use
  Company Number: AU-OTSUKA-2023_031643

PATIENT
  Age: 35 Year
  Sex: Male
  Weight: 104 kg

DRUGS (14)
  1. ARIPIPRAZOLE [Interacting]
     Active Substance: ARIPIPRAZOLE
     Indication: Product used for unknown indication
     Dosage: UNK
     Route: 065
     Dates: start: 2018
  2. DIAZEPAM [Interacting]
     Active Substance: DIAZEPAM
     Indication: Product used for unknown indication
     Dosage: 30 MG
     Route: 065
  3. DIAZEPAM [Interacting]
     Active Substance: DIAZEPAM
     Dosage: 50 MG
     Route: 065
  4. ACETAMINOPHEN [Interacting]
     Active Substance: ACETAMINOPHEN
     Indication: Product used for unknown indication
     Dosage: 2 G
     Route: 065
  5. BREXPIPRAZOLE [Concomitant]
     Active Substance: BREXPIPRAZOLE
     Indication: Product used for unknown indication
     Dosage: 4 MG IN THE MORNING
     Route: 048
  6. REBOXETINE [Concomitant]
     Active Substance: REBOXETINE
     Indication: Product used for unknown indication
     Dosage: UNK
     Route: 065
  7. AMISULPRIDE [Concomitant]
     Active Substance: AMISULPRIDE
     Indication: Product used for unknown indication
     Dosage: 800 MG IN THE MORNING
     Route: 065
  8. AMISULPRIDE [Concomitant]
     Active Substance: AMISULPRIDE
     Dosage: 600 MG AT NIGHT
     Route: 065
  9. QUETIAPINE [Concomitant]
     Active Substance: QUETIAPINE
     Indication: Product used for unknown indication
     Dosage: 400 MG AT NIGHT
     Route: 048
  10. QUETIAPINE [Concomitant]
     Active Substance: QUETIAPINE
     Dosage: 200 MG (REDUCED) AT NIGHT
     Route: 048
  11. OLANZAPINE [Concomitant]
     Active Substance: OLANZAPINE
     Indication: Product used for unknown indication
     Dosage: UNK
     Route: 065
  12. VENLAFAXINE [Concomitant]
     Active Substance: VENLAFAXINE HYDROCHLORIDE
     Indication: Product used for unknown indication
     Dosage: 300 MG IN MORNING
     Route: 065
  13. VALPROATE SODIUM [Concomitant]
     Active Substance: VALPROATE SODIUM
     Indication: Product used for unknown indication
     Dosage: 800 MG, BID
     Route: 048
  14. ROSUVASTATIN [Concomitant]
     Active Substance: ROSUVASTATIN
     Indication: Product used for unknown indication
     Dosage: 10 MG AT NIGHT
     Route: 048

REACTIONS (41)
  - Schizoaffective disorder [Unknown]
  - Social anxiety disorder [Unknown]
  - Intracranial pressure increased [Unknown]
  - Loss of personal independence in daily activities [Unknown]
  - Paranoia [Unknown]
  - Self-injurious ideation [Unknown]
  - Psychotic disorder [Unknown]
  - Persecutory delusion [Unknown]
  - Fear [Unknown]
  - Hallucination, tactile [Unknown]
  - Hallucination, visual [Unknown]
  - Intentional self-injury [Unknown]
  - Homicidal ideation [Unknown]
  - Hallucination, auditory [Unknown]
  - Erectile dysfunction [Unknown]
  - Hyperprolactinaemia [Unknown]
  - Depressed mood [Recovering/Resolving]
  - Hypotension [Unknown]
  - Hypersomnia [Unknown]
  - Aggression [Unknown]
  - Dizziness [Unknown]
  - Insomnia [Unknown]
  - Suicidal ideation [Unknown]
  - Alcohol interaction [Unknown]
  - Treatment noncompliance [Unknown]
  - Drug ineffective [Unknown]
  - Spasmodic dysphonia [Unknown]
  - Obsessive thoughts [Unknown]
  - Neglect of personal appearance [Unknown]
  - Anosognosia [Unknown]
  - Alcohol abuse [Unknown]
  - Delusion of reference [Unknown]
  - Apathy [Unknown]
  - Obesity [Unknown]
  - Panic attack [Unknown]
  - Appetite disorder [Unknown]
  - Disturbance in attention [Unknown]
  - Tremor [Unknown]
  - Fatigue [Unknown]
  - Drug interaction [Unknown]
  - Physical assault [Unknown]

NARRATIVE: CASE EVENT DATE: 20190101
